FAERS Safety Report 7112580-6 (Version None)
Quarter: 2010Q4

REPORT INFORMATION
  Report Type: 
  Country: None (occurrence: None)
  Receive Date: 20101119
  Receipt Date: 20100427
  Transmission Date: 20110411
  Serious: No
  Sender: FDA-Public Use
  Company Number: US-TEVA-233265USA

PATIENT
  Sex: Female
  Weight: 78.542 kg

DRUGS (1)
  1. ALBUTEROL SULFATE AUTOHALER [Suspect]
     Indication: ASTHMA
     Route: 055

REACTIONS (2)
  - DIZZINESS [None]
  - VERTIGO [None]
